FAERS Safety Report 9013741 (Version 1)
Quarter: 2012Q4

REPORT INFORMATION
  Report Type: Spontaneous
  Country: FR (occurrence: None)
  Receive Date: 20121231
  Receipt Date: 20121231
  Transmission Date: 20130627
  Serious: Yes (Death, Hospitalization)
  Sender: FDA-Public Use
  Company Number: DKLU1087399

PATIENT
  Age: 76 Year
  Sex: Male

DRUGS (21)
  1. ONFI [Suspect]
     Indication: EPILEPSY
     Route: 048
     Dates: start: 20120809, end: 20120818
  2. LAMOTRIGINE [Suspect]
     Indication: EPILEPSY
     Route: 048
     Dates: start: 20120809, end: 20120818
  3. PROPYLTHIOURACIL [Suspect]
     Indication: PRODUCT USED FOR UNKNOWN INDICATION
     Dates: start: 201206, end: 201208
  4. ABACAVIR [Concomitant]
  5. LASILIX (FUROSEMIDE) [Concomitant]
  6. COVERSYL (PERINDOPRIL ERBUMINE) [Concomitant]
  7. CORVASAL (MOLSIDOMINE) [Concomitant]
  8. ALLOPURINOL (ALLOPURINOL) [Concomitant]
  9. DISCOTRINE (GLYCERYL TRINITRATE) [Concomitant]
  10. CARDENSIEL (BISOPROLOL FUMARATE) [Concomitant]
  11. QUESTRAN (COLESTYRAMINE) [Concomitant]
  12. LACTULOSE (LACTULOSE) [Concomitant]
  13. KARDEGIC (ACTYLSALICYLATE LYSINE) [Concomitant]
  14. FENOFIBRATE (FENOFIBRATE) [Concomitant]
  15. SUSTIVA (EFAVIRENZ) [Concomitant]
  16. FOLIC ACID (FOLIC ACID) [Concomitant]
  17. NEXIUM (ESOMEPRAZOLE MAGNESIUM) [Concomitant]
  18. DIFFU K (POTASSIUM CHLORIDE) [Concomitant]
  19. ORGARAN (DANAPAROID SODIUM) [Concomitant]
  20. PREVISCAN (PENTOXIFYLLINE) [Concomitant]
  21. NICOBION (NICOTINAMIDE) [Concomitant]

REACTIONS (12)
  - Epilepsy [None]
  - Agranulocytosis [None]
  - Thrombocytopenia [None]
  - Altered state of consciousness [None]
  - Somnolence [None]
  - Pyrexia [None]
  - Confusional state [None]
  - Respiratory distress [None]
  - Neutropenia [None]
  - Ventricular tachycardia [None]
  - Renal failure acute [None]
  - Dialysis [None]
